FAERS Safety Report 4823535-6 (Version None)
Quarter: 2005Q4

REPORT INFORMATION
  Report Type: 
  Country: None (occurrence: None)
  Receive Date: 20051107
  Receipt Date: 20051020
  Transmission Date: 20060501
  Serious: Yes (Other)
  Sender: FDA-Public Use
  Company Number: 2005BH002452

PATIENT
  Sex: Female
  Weight: 61 kg

DRUGS (3)
  1. DOPAMINE [Suspect]
     Indication: DRUG USE FOR UNKNOWN INDICATION
     Dosage: 15 UG/KG; IV
     Route: 042
  2. NOREPINEPHRINE [Concomitant]
  3. EPINEPHRINE [Concomitant]

REACTIONS (2)
  - HYPOTENSION [None]
  - MEDICAL DEVICE COMPLICATION [None]
